FAERS Safety Report 23495061 (Version 1)
Quarter: 2024Q1

REPORT INFORMATION
  Report Type: Spontaneous
  Country: US (occurrence: US)
  Receive Date: 20240207
  Receipt Date: 20240207
  Transmission Date: 20240410
  Serious: No
  Sender: FDA-Public Use
  Company Number: US-BIOVITRUM-2024-US-001924

PATIENT
  Age: 25 Month
  Sex: Female
  Weight: 13.1 kg

DRUGS (5)
  1. SYNAGIS [Suspect]
     Active Substance: PALIVIZUMAB
     Indication: Premature baby
     Dosage: INJECT 15 MG/KG INTO THE MUSCLE, ONCE A MONTH?100 MG STRENGTH
     Route: 030
     Dates: start: 20221028
  2. ALBUTEROL SULFATE [Concomitant]
     Active Substance: ALBUTEROL SULFATE
     Indication: Product used for unknown indication
  3. MULTI-VIT-FLOR [Concomitant]
     Active Substance: .ALPHA.-TOCOPHEROL, D-\CHOLECALCIFEROL\CYANOCOBALAMIN\LEVOMEFOLATE CALCIUM\NIACINAMIDE\PYRIDOXINE HY
     Indication: Product used for unknown indication
  4. MONTELUKAST SODIUM [Concomitant]
     Active Substance: MONTELUKAST SODIUM
     Indication: Product used for unknown indication
  5. FLUTICASONE PROPIONATE\SALMETEROL XINAFOATE [Concomitant]
     Active Substance: FLUTICASONE PROPIONATE\SALMETEROL XINAFOATE
     Indication: Product used for unknown indication

REACTIONS (2)
  - Metapneumovirus infection [Not Recovered/Not Resolved]
  - Injection site cellulitis [Not Recovered/Not Resolved]

NARRATIVE: CASE EVENT DATE: 20240127
